FAERS Safety Report 4500620-X (Version None)
Quarter: 2004Q4

REPORT INFORMATION
  Report Type: 
  Country: None (occurrence: None)
  Receive Date: 20041115
  Receipt Date: 20041102
  Transmission Date: 20050328
  Serious: Yes (Hospitalization)
  Sender: FDA-Public Use
  Company Number: AU-BRISTOL-MYERS SQUIBB COMPANY-12753075

PATIENT
  Age: 17 Year
  Sex: Female

DRUGS (9)
  1. ABILIFY [Suspect]
     Route: 048
     Dates: start: 20031126, end: 20031205
  2. SEROQUEL [Interacting]
  3. MIDAZOLAM [Interacting]
     Route: 030
  4. DROPERIDOL [Interacting]
     Route: 030
  5. LAMICTAL [Interacting]
     Route: 048
  6. DIAZEPAM [Interacting]
     Route: 048
  7. VALPROIC ACID [Interacting]
     Route: 048
  8. LEVLEN 28 [Concomitant]
  9. MYLANTA [Concomitant]

REACTIONS (2)
  - DEPRESSED LEVEL OF CONSCIOUSNESS [None]
  - DRUG INTERACTION [None]
